FAERS Safety Report 19611672 (Version 1)
Quarter: 2021Q3

REPORT INFORMATION
  Report Type: Other
  Country: US (occurrence: US)
  Receive Date: 20210726
  Receipt Date: 20210726
  Transmission Date: 20211014
  Serious: Yes (Other)
  Sender: FDA-Public Use
  Company Number: US-NEUROCRINE BIOSCIENCES INC.-2021NBI03808

PATIENT

DRUGS (5)
  1. RASAGILINE MESYLATE. [Concomitant]
     Active Substance: RASAGILINE MESYLATE
     Dosage: UNK
  2. ABILIFY [Concomitant]
     Active Substance: ARIPIPRAZOLE
     Dosage: UNK
  3. RYTARY [Concomitant]
     Active Substance: CARBIDOPA\LEVODOPA
     Dosage: UNK
  4. ONGENTYS [Suspect]
     Active Substance: OPICAPONE
     Indication: PARKINSON^S DISEASE
     Dosage: 50 MILLIGRAM, QHS
     Route: 048
     Dates: start: 202011
  5. CARBIDOPA/LEVODOPA [Concomitant]
     Active Substance: CARBIDOPA\LEVODOPA
     Dosage: UNK

REACTIONS (3)
  - Parkinson^s disease [Unknown]
  - Product dose omission in error [Unknown]
  - Psychotic disorder [Not Recovered/Not Resolved]
